FAERS Safety Report 21054078 (Version 1)
Quarter: 2022Q3

REPORT INFORMATION
  Report Type: Spontaneous
  Country: US (occurrence: US)
  Receive Date: 20220707
  Receipt Date: 20220707
  Transmission Date: 20221026
  Serious: Yes (Other)
  Sender: FDA-Public Use
  Company Number: US-PFIZER INC-202200920973

PATIENT
  Age: 49 Year
  Sex: Female
  Weight: 154.22 kg

DRUGS (17)
  1. XELJANZ [Suspect]
     Active Substance: TOFACITINIB CITRATE
     Indication: Psoriatic arthropathy
     Dosage: 5 MG, 2X/DAY
  2. XELJANZ [Suspect]
     Active Substance: TOFACITINIB CITRATE
     Indication: Ankylosing spondylitis
  3. WELLBUTRIN [Concomitant]
     Active Substance: BUPROPION HYDROCHLORIDE
     Dosage: 300 MG, 1X/DAY
  4. TOPAMAX [Concomitant]
     Active Substance: TOPIRAMATE
     Dosage: 100 MG, 1X/DAY
  5. ESTOMIL [Concomitant]
     Dosage: UNK
  6. MELOXICAM [Concomitant]
     Active Substance: MELOXICAM
     Dosage: 15 MG, 2X/DAY
  7. OMEPRAZOLE [Concomitant]
     Active Substance: OMEPRAZOLE
     Dosage: 40 MG, DAILY
  8. TRAMADOL [Concomitant]
     Active Substance: TRAMADOL
     Dosage: 50 MG, 2X/DAY
  9. TRELEGY ELLIPTA [Concomitant]
     Active Substance: FLUTICASONE FUROATE\UMECLIDINIUM BROMIDE\VILANTEROL TRIFENATATE
     Indication: Chronic obstructive pulmonary disease
     Dosage: UNK, 1X/DAY
  10. TAMCONTIN [Concomitant]
     Dosage: 0.2 MG, 1X/DAY (AT BEDTIME)
  11. SYNTHROID [Concomitant]
     Active Substance: LEVOTHYROXINE SODIUM
     Dosage: 0.75 UG
  12. LOSARTAN [Concomitant]
     Active Substance: LOSARTAN
     Dosage: 100 MG
  13. QUETIAPINE [Concomitant]
     Active Substance: QUETIAPINE
     Dosage: 100 MG, 1X/DAY (AT BEDTIME)
  14. DULOXETINE [Concomitant]
     Active Substance: DULOXETINE
     Dosage: 30 MG
  15. CITARA [Concomitant]
     Dosage: 40 MG
  16. LASIX [Concomitant]
     Active Substance: FUROSEMIDE
     Dosage: 20 MG
  17. TIZANIDINE [Concomitant]
     Active Substance: TIZANIDINE
     Dosage: 4 MG

REACTIONS (1)
  - COVID-19 pneumonia [Not Recovered/Not Resolved]
